FAERS Safety Report 7645661-9 (Version None)
Quarter: 2011Q3

REPORT INFORMATION
  Report Type: 
  Country: None (occurrence: None)
  Receive Date: 20110729
  Receipt Date: 20110718
  Transmission Date: 20111222
  Serious: No
  Sender: FDA-Public Use
  Company Number: US-PFIZER INC-2011171896

PATIENT
  Sex: Female

DRUGS (2)
  1. ETANERCEPT [Concomitant]
     Indication: PSORIATIC ARTHROPATHY
     Dosage: 50 MG, WEEKLY
     Dates: start: 20101221
  2. SULFASALAZINE [Suspect]
     Dosage: UNK

REACTIONS (1)
  - DRUG HYPERSENSITIVITY [None]
